FAERS Safety Report 14112226 (Version 1)
Quarter: 2017Q4

REPORT INFORMATION
  Report Type: Spontaneous
  Country: US (occurrence: None)
  Receive Date: 20171020
  Receipt Date: 20171020
  Transmission Date: 20180321
  Serious: No
  Sender: FDA-Public Use
  Company Number: None

PATIENT

DRUGS (2)
  1. PRIVIGEN [Suspect]
     Active Substance: HUMAN IMMUNOGLOBULIN G
     Dosage: DOSAGE FORM - LIQUID?SIZE - 100 ML
     Route: 042
  2. ALBURX [Suspect]
     Active Substance: ALBUMIN HUMAN
     Dosage: DOSAGE FORM - SOLUTION?SIZE - 100 ML
     Route: 042

REACTIONS (1)
  - Product packaging confusion [None]
